FAERS Safety Report 10043335 (Version 1)
Quarter: 2014Q1

REPORT INFORMATION
  Report Type: Spontaneous
  Country: US (occurrence: None)
  Receive Date: 20140327
  Receipt Date: 20140327
  Transmission Date: 20141002
  Serious: Yes (Other)
  Sender: FDA-Public Use
  Company Number: None

PATIENT
  Age: 5 Year
  Sex: Male
  Weight: 21.32 kg

DRUGS (1)
  1. SINGULAIR [Suspect]
     Indication: ASTHMA PROPHYLAXIS
     Route: 048
     Dates: start: 20140205, end: 20140320

REACTIONS (7)
  - Asthma [None]
  - Mood altered [None]
  - Anger [None]
  - Crying [None]
  - Abnormal dreams [None]
  - Depressed mood [None]
  - Feeling abnormal [None]
